FAERS Safety Report 4356387-1 (Version None)
Quarter: 2004Q2

REPORT INFORMATION
  Report Type: 
  Country: None (occurrence: None)
  Receive Date: 20040506
  Receipt Date: 20040503
  Transmission Date: 20050107
  Serious: Yes (Other)
  Sender: FDA-Public Use
  Company Number: C-04-0025

PATIENT
  Age: 16 Year
  Sex: Female
  Weight: 47.6277 kg

DRUGS (1)
  1. NYSTATIN [Suspect]
     Indication: CANDIDIASIS
     Dosage: 3-4 DOSES
     Dates: start: 20031126

REACTIONS (1)
  - RASH [None]
